FAERS Safety Report 20657211 (Version 2)
Quarter: 2022Q2

REPORT INFORMATION
  Report Type: Spontaneous
  Country: US (occurrence: US)
  Receive Date: 20220331
  Receipt Date: 20220530
  Transmission Date: 20220721
  Serious: Yes (Other)
  Sender: FDA-Public Use
  Company Number: US-BRISTOL-MYERS SQUIBB COMPANY-2022-011394

PATIENT
  Age: 73 Year
  Sex: Female

DRUGS (3)
  1. ORENCIA [Suspect]
     Active Substance: ABATACEPT
     Indication: Product used for unknown indication
     Route: 058
  2. SOOTHE XP [Concomitant]
     Active Substance: LIGHT MINERAL OIL\MINERAL OIL
     Indication: Sjogren^s syndrome
     Route: 065
  3. COVID VACCINE [Concomitant]
     Indication: COVID-19 immunisation
     Route: 065

REACTIONS (3)
  - Drug ineffective [Unknown]
  - Contusion [Unknown]
  - Rheumatoid arthritis [Unknown]
